FAERS Safety Report 20115296 (Version 2)
Quarter: 2022Q1

REPORT INFORMATION
  Report Type: Report from Study
  Country: US (occurrence: US)
  Receive Date: 20211125
  Receipt Date: 20220107
  Transmission Date: 20220423
  Serious: Yes (Death, Hospitalization)
  Sender: FDA-Public Use
  Company Number: US-UCBSA-2021054242

PATIENT
  Age: 85 Year
  Sex: Male

DRUGS (1)
  1. ROTIGOTINE [Suspect]
     Active Substance: ROTIGOTINE
     Indication: Parkinson^s disease
     Dosage: 3MG 1 PATCH DAILY
     Dates: end: 20210821

REACTIONS (3)
  - Death [Fatal]
  - Hospitalisation [Unknown]
  - Hospice care [Unknown]

NARRATIVE: CASE EVENT DATE: 20210821
